FAERS Safety Report 11772516 (Version 1)
Quarter: 2015Q4

REPORT INFORMATION
  Report Type: Spontaneous
  Country: US (occurrence: US)
  Receive Date: 20151124
  Receipt Date: 20151124
  Transmission Date: 20160304
  Serious: Yes (Other)
  Sender: FDA-Public Use
  Company Number: US-TEVA-610659USA

PATIENT
  Age: 53 Year
  Sex: Female

DRUGS (4)
  1. TEMOZOLOMIDE. [Suspect]
     Active Substance: TEMOZOLOMIDE
     Indication: METASTATIC MALIGNANT MELANOMA
     Dosage: INTERMITTENT LOW DOSE
     Route: 065
  2. VEMURAFENIB [Suspect]
     Active Substance: VEMURAFENIB
     Indication: METASTATIC MALIGNANT MELANOMA
     Dosage: AT 3 MONTHS 1 WEEK ON THEN 1WEEK OFF FOR TOTAL 12 MONTHS
     Route: 065
  3. INTERLEUKIN-2 [Suspect]
     Active Substance: ALDESLEUKIN
     Indication: METASTATIC MALIGNANT MELANOMA
     Dosage: HIGH DOSE
     Route: 065
  4. IPILIMUMAB [Suspect]
     Active Substance: IPILIMUMAB
     Indication: METASTATIC MALIGNANT MELANOMA
     Dosage: COMPLETED TOTAL 4 CYCLES, WITH 4 DOSES AT 3MG/KG EVERY 3 WEEKS
     Route: 065

REACTIONS (5)
  - Synovitis [Unknown]
  - Rash pruritic [Unknown]
  - Vitiligo [Unknown]
  - Lymphocytic hypophysitis [Unknown]
  - Arthritis [Recovering/Resolving]
